FAERS Safety Report 7698831-8 (Version None)
Quarter: 2011Q3

REPORT INFORMATION
  Report Type: 
  Country: None (occurrence: None)
  Receive Date: 20110819
  Receipt Date: 20110815
  Transmission Date: 20111222
  Serious: Yes (Other)
  Sender: FDA-Public Use
  Company Number: US-BAYER-2011-073717

PATIENT
  Sex: Female

DRUGS (1)
  1. MAGNEVIST [Suspect]
     Indication: NUCLEAR MAGNETIC RESONANCE IMAGING BREAST

REACTIONS (5)
  - SOMNOLENCE [None]
  - ARTHRALGIA [None]
  - PAIN [None]
  - DIZZINESS [None]
  - GAIT DISTURBANCE [None]
